FAERS Safety Report 21642027 (Version 1)
Quarter: 2022Q4

REPORT INFORMATION
  Report Type: Report from Study
  Country: PR (occurrence: PR)
  Receive Date: 20221125
  Receipt Date: 20221125
  Transmission Date: 20230112
  Serious: Yes (Death)
  Sender: FDA-Public Use
  Company Number: PR-ABBVIE-4212966

PATIENT
  Sex: Female

DRUGS (4)
  1. HUMIRA [Suspect]
     Active Substance: ADALIMUMAB
     Indication: Psoriasis
     Route: 058
     Dates: start: 20180511
  2. ELASOMERAN [Concomitant]
     Active Substance: ELASOMERAN
     Indication: COVID-19
     Dosage: 1ST DOSE, ONCE, START DATE TEXT: UNKNOWN
     Route: 030
  3. ELASOMERAN [Concomitant]
     Active Substance: ELASOMERAN
     Indication: COVID-19
     Dosage: 2ND DOSE, ONCE, START DATE TEXT: UNKNOWN
     Route: 030
  4. ELASOMERAN [Concomitant]
     Active Substance: ELASOMERAN
     Indication: COVID-19
     Dosage: 3RD DOSE, ONCE, START DATE TEXT: UNKNOWN
     Route: 030

REACTIONS (1)
  - Chronic obstructive pulmonary disease [Fatal]
